FAERS Safety Report 15021785 (Version 1)
Quarter: 2018Q2

REPORT INFORMATION
  Report Type: Spontaneous
  Country: US (occurrence: US)
  Receive Date: 20180601
  Receipt Date: 20180601
  Transmission Date: 20180711
  Serious: Yes (Death, Hospitalization)
  Sender: FDA-Public Use
  Company Number: None

PATIENT
  Age: 71 Year
  Sex: Male

DRUGS (1)
  1. ENASIDENIB [Suspect]
     Active Substance: ENASIDENIB
     Indication: ACUTE MYELOID LEUKAEMIA
     Route: 048
     Dates: start: 20180412, end: 20180508

REACTIONS (5)
  - Acute promyelocytic leukaemia differentiation syndrome [None]
  - Disease progression [None]
  - Sepsis [None]
  - Haemorrhagic stroke [None]
  - Disseminated intravascular coagulation [None]

NARRATIVE: CASE EVENT DATE: 20180512
